FAERS Safety Report 4830395-6 (Version None)
Quarter: 2005Q4

REPORT INFORMATION
  Report Type: 
  Country: None (occurrence: None)
  Receive Date: 20051114
  Receipt Date: 20051028
  Transmission Date: 20060501
  Serious: Yes (Hospitalization)
  Sender: FDA-Public Use
  Company Number: 2005-02244

PATIENT
  Age: 60 Year
  Sex: Male

DRUGS (3)
  1. VELCADE [Suspect]
     Indication: MULTIPLE MYELOMA
     Dates: end: 20050101
  2. THALOMID [Suspect]
     Indication: MULTIPLE MYELOMA
     Dosage: 100.00 MG, QD, ORAL
     Route: 048
     Dates: start: 20050427, end: 20050731
  3. DECADRON [Suspect]
     Indication: MULTIPLE MYELOMA
     Dates: end: 20050101

REACTIONS (2)
  - ATRIAL FIBRILLATION [None]
  - CELLULITIS [None]
